FAERS Safety Report 8431908 (Version 4)
Quarter: 2012Q4

REPORT INFORMATION
  Report Type: 
  Country: US (occurrence: US)
  Receive Date: 20120229
  Receipt Date: 20120912
  Transmission Date: 20130627
  Serious: Yes (Life-Threatening, Hospitalization, Disabling)
  Sender: FDA-Public Use
  Company Number: US-BAYER-2012-019432

PATIENT
  Age: 23 Year
  Sex: Female
  Weight: 66.21 kg

DRUGS (25)
  1. YAZ [Suspect]
     Indication: CONTRACEPTION
     Dosage: UNK
     Dates: start: 2008, end: 2009
  2. VERSED [Concomitant]
     Dosage: UNK
     Dates: start: 20081203
  3. FENTANYL [Concomitant]
     Dosage: UNK
     Dates: start: 20081203
  4. IBUPROFEN [Concomitant]
     Dosage: 800 mg, UNK
     Route: 048
     Dates: start: 20081203
  5. DOXYCYCLINE [Concomitant]
     Dosage: 100 mg, BID for 7 days
     Route: 048
     Dates: start: 20081203
  6. ROCEPHIN [Concomitant]
  7. ACYCLOVIR [ACICLOVIR] [Concomitant]
  8. CALCIUM CARBONATE [Concomitant]
  9. INSULIN [INSULIN] [Concomitant]
  10. ZITHROMAX [Concomitant]
  11. SULFAMETHOXAZOLE/TRIMETHOPRIM [Concomitant]
     Dosage: UNK
     Route: 048
     Dates: start: 20081124
  12. METRONIDAZOLE [Concomitant]
     Dosage: 250 mg, UNK
     Route: 048
     Dates: start: 20081124
  13. DIETARY SUPPLEMENT [Concomitant]
     Dosage: UNK
     Route: 048
  14. DIETARY SUPPLEMENT [Concomitant]
     Dosage: UNK, daily
     Dates: start: 200812, end: 200901
  15. ANTIINFLAMMATORY/ANTIRHEUMATIC PRODUCTS [Concomitant]
     Dosage: UNK
     Route: 048
  16. AMIODARONE [Concomitant]
  17. KEPPRA [Concomitant]
  18. PHENYTOIN [Concomitant]
  19. GABAPENTIN [Concomitant]
     Indication: SLEEP DISORDER
  20. AMBIEN [Concomitant]
     Indication: INSOMNIA
     Dosage: UNK
     Dates: start: 2005, end: 2009
  21. AMBIEN [Concomitant]
     Indication: INSOMNIA
     Dosage: UNK
     Dates: start: 2005, end: 2009
  22. LORAZEPAM [Concomitant]
  23. SEROQUEL [Concomitant]
     Indication: DEPRESSION
     Dosage: UNK
     Dates: start: 2005, end: 2009
  24. SEROQUEL [Concomitant]
     Indication: BIPOLAR DISORDER
     Dosage: UNK
     Dates: start: 2005, end: 2009
  25. ADDERALL XR [Concomitant]
     Indication: ATTENTION DEFICIT/HYPERACTIVITY DISORDER
     Dosage: UNK, daily
     Dates: start: 2005, end: 2009

REACTIONS (9)
  - Cardiac arrest [Recovered/Resolved with Sequelae]
  - Hypoxic-ischaemic encephalopathy [Recovered/Resolved with Sequelae]
  - Memory impairment [Recovered/Resolved with Sequelae]
  - Migraine [None]
  - Scar [None]
  - Emotional distress [None]
  - Apparent death [Recovered/Resolved with Sequelae]
  - Affective disorder [None]
  - Anxiety disorder [None]
